FAERS Safety Report 24153810 (Version 1)
Quarter: 2024Q3

REPORT INFORMATION
  Report Type: Spontaneous
  Country: CA (occurrence: CA)
  Receive Date: 20240730
  Receipt Date: 20240730
  Transmission Date: 20241017
  Serious: Yes (Other)
  Sender: PFIZER
  Company Number: CA-PFIZER INC-202400224408

PATIENT
  Age: 53 Year
  Sex: Male

DRUGS (1)
  1. METHOTREXATE SODIUM [Suspect]
     Active Substance: METHOTREXATE SODIUM
     Dosage: 2.5 MG TABLETS, 10 TABLETS WEEKLY (MAXIMUM DOSAGE)
     Route: 048

REACTIONS (20)
  - Polymyositis [Unknown]
  - Treatment failure [Unknown]
  - Myalgia [Unknown]
  - Pain [Unknown]
  - Pain in extremity [Unknown]
  - Dysphagia [Unknown]
  - Dyspnoea [Unknown]
  - Rash [Unknown]
  - Blood creatine phosphokinase increased [Unknown]
  - Blood creatine decreased [Unknown]
  - Asthenia [Unknown]
  - Hypoaesthesia [Unknown]
  - Dysstasia [Not Recovered/Not Resolved]
  - Dizziness [Unknown]
  - Muscle atrophy [Unknown]
  - Arthralgia [Recovered/Resolved]
  - Arthralgia [Unknown]
  - Anxiety [Unknown]
  - Neutrophil count increased [Unknown]
  - Non-high-density lipoprotein cholesterol increased [Unknown]

NARRATIVE: CASE EVENT DATE: 20200101
